FAERS Safety Report 24553531 (Version 1)
Quarter: 2024Q4

REPORT INFORMATION
  Report Type: Spontaneous
  Country: US (occurrence: US)
  Receive Date: 20241028
  Receipt Date: 20241028
  Transmission Date: 20250114
  Serious: No
  Sender: SUNSHINE LAKE PHARMA
  Company Number: US-Sunshine Lake Pharma Co, Ltd.-2163931

PATIENT
  Sex: Female

DRUGS (1)
  1. FINGOLIMOD HYDROCHLORIDE [Suspect]
     Active Substance: FINGOLIMOD HYDROCHLORIDE
     Indication: Multiple sclerosis

REACTIONS (2)
  - Visual impairment [Unknown]
  - Drug ineffective [Unknown]
